FAERS Safety Report 4721958-7 (Version None)
Quarter: 2005Q3

REPORT INFORMATION
  Report Type: 
  Country: None (occurrence: None)
  Receive Date: 20050722
  Receipt Date: 20050628
  Transmission Date: 20060218
  Serious: Yes (Hospitalization, Other)
  Sender: FDA-Public Use
  Company Number: US-AMGEN-US138315

PATIENT
  Sex: Male
  Weight: 76.3 kg

DRUGS (10)
  1. EPOGEN [Suspect]
     Indication: DIALYSIS
     Dates: start: 20050314, end: 20050606
  2. SENSIPAR [Concomitant]
     Indication: HYPERPARATHYROIDISM SECONDARY
     Route: 048
     Dates: start: 20050310
  3. BLOOD CELLS, PACKED HUMAN [Concomitant]
     Route: 042
     Dates: start: 20050101
  4. IMMUNOSUPPRESSANTS [Concomitant]
     Dates: start: 19940101, end: 20050101
  5. NIFEDIPINE [Concomitant]
  6. ALLOPURINOL [Concomitant]
  7. CLONIDINE [Concomitant]
  8. ZANTAC [Concomitant]
  9. SYNTHROID [Concomitant]
     Route: 048
  10. PREDNISONE [Concomitant]

REACTIONS (8)
  - BONE MARROW DEPRESSION [None]
  - CALCINOSIS [None]
  - CONDITION AGGRAVATED [None]
  - DRUG INEFFECTIVE [None]
  - PARATHYROIDECTOMY [None]
  - SPLENOMEGALY [None]
  - T-CELL CHRONIC LYMPHOCYTIC LEUKAEMIA [None]
  - THYROIDECTOMY [None]
